FAERS Safety Report 5152409-9 (Version None)
Quarter: 2006Q4

REPORT INFORMATION
  Report Type: 
  Country: None (occurrence: None)
  Receive Date: 20061116
  Receipt Date: 20060921
  Transmission Date: 20070319
  Serious: Yes (Hospitalization, Other)
  Sender: FDA-Public Use
  Company Number: US-ELI_LILLY_AND_COMPANY-US200609007043

PATIENT
  Age: 35 Year
  Sex: Female
  Weight: 126.98 kg

DRUGS (2)
  1. PAROXETINE HYDROCHLORIDE [Concomitant]
     Route: 048
     Dates: start: 19990101, end: 20060101
  2. ZYPREXA [Suspect]
     Indication: DEPRESSION
     Dosage: 25 MG, UNK
     Dates: start: 19990101

REACTIONS (8)
  - BLOOD CHOLESTEROL INCREASED [None]
  - CARDIAC DISORDER [None]
  - DIABETES MELLITUS [None]
  - DIABETIC KETOACIDOSIS [None]
  - HYPERINSULINISM [None]
  - HYPERTENSION [None]
  - OBESITY [None]
  - PRESCRIBED OVERDOSE [None]
